FAERS Safety Report 24258164 (Version 5)
Quarter: 2024Q4

REPORT INFORMATION
  Report Type: Spontaneous
  Country: US (occurrence: US)
  Receive Date: 20240828
  Receipt Date: 20241206
  Transmission Date: 20250114
  Serious: Yes (Other)
  Sender: BRISTOL-MYERS SQUIBB COMPANY
  Company Number: US-BRISTOL-MYERS SQUIBB COMPANY-2024-135884

PATIENT
  Age: 64 Year
  Sex: Female
  Weight: 50.3 kg

DRUGS (4)
  1. REVLIMID [Suspect]
     Active Substance: LENALIDOMIDE
     Indication: Plasma cell myeloma
     Route: 048
     Dates: start: 20230511
  2. REVLIMID [Suspect]
     Active Substance: LENALIDOMIDE
     Dates: start: 20240823
  3. REVLIMID [Suspect]
     Active Substance: LENALIDOMIDE
     Dosage: DAILY
     Route: 048
     Dates: start: 20240829, end: 20240927
  4. REVLIMID [Suspect]
     Active Substance: LENALIDOMIDE
     Dates: start: 20240819

REACTIONS (6)
  - Pruritus [Unknown]
  - Dyspnoea [Unknown]
  - Pancytopenia [Not Recovered/Not Resolved]
  - Syncope [Unknown]
  - Fatigue [Unknown]
  - Influenza [Unknown]

NARRATIVE: CASE EVENT DATE: 20240814
